FAERS Safety Report 6160466-6 (Version None)
Quarter: 2009Q2

REPORT INFORMATION
  Report Type: 
  Country: None (occurrence: None)
  Receive Date: 20090420
  Receipt Date: 20090217
  Transmission Date: 20091009
  Serious: Yes (Other)
  Sender: FDA-Public Use
  Company Number: US-BAYER-200910617BCC

PATIENT
  Age: 85 Year
  Sex: Female
  Weight: 58 kg

DRUGS (4)
  1. ALEVE [Suspect]
     Indication: SPONDYLITIS
     Dosage: AS USED: 220 MG  UNIT DOSE: 220 MG
     Route: 048
     Dates: start: 20090217
  2. VITAMIN B-12 [Concomitant]
  3. CALCIUM [Concomitant]
  4. ICAPS [Concomitant]

REACTIONS (1)
  - SOMNOLENCE [None]
